FAERS Safety Report 6785016-2 (Version None)
Quarter: 2010Q2

REPORT INFORMATION
  Report Type: 
  Country: None (occurrence: None)
  Receive Date: 20100618
  Receipt Date: 20100610
  Transmission Date: 20101027
  Serious: Yes (Disabling)
  Sender: FDA-Public Use
  Company Number: 2010JP003392

PATIENT
  Sex: Male

DRUGS (4)
  1. TACROLIMUS [Suspect]
     Dosage: MG, BID, TRANSPLACENTAL
     Route: 064
  2. MYCOPHENOLATE MOFETIL [Suspect]
     Dosage: G, BID, TRANSPLACENTAL
     Route: 064
  3. PREDNISOLONE [Suspect]
     Dosage: MG, /D, TRANSPLACENTAL
     Route: 064
  4. LABETALOL HCL [Suspect]
     Dosage: TRANSPLACENTAL
     Route: 064

REACTIONS (9)
  - ANOMALY OF EXTERNAL EAR CONGENITAL [None]
  - CAESAREAN SECTION [None]
  - CONGENITAL EYELID MALFORMATION [None]
  - CONGENITAL JAW MALFORMATION [None]
  - CONGENITAL ORAL MALFORMATION [None]
  - DYSMORPHISM [None]
  - MATERNAL DRUGS AFFECTING FOETUS [None]
  - MICROTIA [None]
  - PREMATURE BABY [None]
